FAERS Safety Report 11724548 (Version 1)
Quarter: 2015Q4

REPORT INFORMATION
  Report Type: Spontaneous
  Country: US (occurrence: US)
  Receive Date: 20151111
  Receipt Date: 20151111
  Transmission Date: 20160304
  Serious: No
  Sender: FDA-Public Use
  Company Number: ALCN2015US007002

PATIENT
  Age: 76 Year
  Sex: Male

DRUGS (1)
  1. SYSTANE ULTRA [Suspect]
     Active Substance: POLYETHYLENE GLYCOL 400\PROPYLENE GLYCOL
     Indication: DRY EYE
     Dosage: 1 UNK, UNK
     Route: 047

REACTIONS (2)
  - Eye pain [Recovered/Resolved]
  - Vision blurred [Recovered/Resolved]
